FAERS Safety Report 8958656 (Version 1)
Quarter: 2012Q4

REPORT INFORMATION
  Report Type: Spontaneous
  Country: US (occurrence: None)
  Receive Date: 20121206
  Receipt Date: 20121206
  Transmission Date: 20130627
  Serious: Yes (Disabling)
  Sender: FDA-Public Use
  Company Number: None

PATIENT
  Age: 25 Year
  Sex: Male
  Weight: 81.65 kg

DRUGS (1)
  1. FINASTERIDE [Suspect]
     Indication: HAIR LOSS
     Dosage: 1.25 mg  1 time daily po
     Route: 048

REACTIONS (8)
  - Libido decreased [None]
  - Feeling hot [None]
  - Prostatic pain [None]
  - Testicular pain [None]
  - Semen analysis abnormal [None]
  - Epididymal tenderness [None]
  - Ejaculation disorder [None]
  - Anxiety [None]
